FAERS Safety Report 8911438 (Version 3)
Quarter: 2012Q4

REPORT INFORMATION
  Report Type: 
  Country: BE (occurrence: BE)
  Receive Date: 20121116
  Receipt Date: 20121206
  Transmission Date: 20130627
  Serious: Yes (Hospitalization, Other)
  Sender: FDA-Public Use
  Company Number: BE-MPIJNJ-2012-08127

PATIENT

DRUGS (10)
  1. VELCADE [Suspect]
     Indication: MULTIPLE MYELOMA
     Dosage: 1 mg/m2, UNK
     Route: 058
  2. CELLCEPT [Concomitant]
     Dosage: UNK
     Route: 048
     Dates: start: 2008
  3. ALLOPURINOL [Concomitant]
     Indication: URTICARIA
     Dosage: UNK
     Route: 048
     Dates: start: 2008
  4. METHYLPREDNISOLONE [Concomitant]
     Dosage: 4 mg, UNK
     Dates: start: 2008
  5. ASAFLOW [Concomitant]
     Dosage: UNK
     Route: 048
     Dates: start: 2008
  6. GLURENORM [Concomitant]
     Indication: TYPE 2 DIABETES MELLITUS
     Dosage: UNK
     Route: 048
     Dates: start: 2008
  7. LOORTAN [Concomitant]
     Indication: HYPERTENSION
     Dosage: UNK
     Route: 048
     Dates: start: 2008
  8. NOBITEN                            /01339101/ [Concomitant]
     Indication: HYPERTENSION
     Dosage: UNK
     Route: 048
     Dates: start: 2008
  9. SIMVASTATINE [Concomitant]
     Dosage: UNK
     Route: 048
     Dates: start: 2008
  10. ADVAGRAF [Concomitant]

REACTIONS (2)
  - Inappropriate antidiuretic hormone secretion [Unknown]
  - Dizziness [Recovered/Resolved]
